FAERS Safety Report 5775309-X (Version None)
Quarter: 2008Q2

REPORT INFORMATION
  Report Type: 
  Country: None (occurrence: None)
  Receive Date: 20080616
  Receipt Date: 20080616
  Transmission Date: 20081010
  Serious: Yes (Other)
  Sender: FDA-Public Use
  Company Number: None

PATIENT
  Age: 5 Year
  Sex: Female
  Weight: 17 kg

DRUGS (2)
  1. BOTOX [Suspect]
     Indication: CEREBRAL PALSY
     Dosage: 100UNITS ONCE IM
     Route: 030
     Dates: start: 20080417, end: 20080417
  2. BOTOX [Suspect]
     Indication: MUSCLE SPASTICITY
     Dosage: 100UNITS ONCE IM
     Route: 030
     Dates: start: 20080417, end: 20080417

REACTIONS (2)
  - DRUG EFFECT DECREASED [None]
  - FAECAL INCONTINENCE [None]
